FAERS Safety Report 7978659-1 (Version None)
Quarter: 2011Q4

REPORT INFORMATION
  Report Type: 
  Country: None (occurrence: None)
  Receive Date: 20111214
  Receipt Date: 20111207
  Transmission Date: 20120403
  Serious: Yes (Other)
  Sender: FDA-Public Use
  Company Number: US-SANOFI-AVENTIS-2011SA072977

PATIENT
  Age: 68 Year
  Sex: Female

DRUGS (4)
  1. MULTAQ [Suspect]
     Indication: ATRIAL FIBRILLATION
     Route: 048
     Dates: start: 20111031
  2. COUMADIN [Suspect]
     Dosage: MONDAY, WEDNESDAY, FRIDAY, AND SUNDAY
  3. COUMADIN [Suspect]
     Route: 065
     Dates: start: 20111030, end: 20111030
  4. COUMADIN [Suspect]
     Dosage: TUESDAY, THURSDAY, AND SATURDAY

REACTIONS (4)
  - INADEQUATE DIET [None]
  - WEIGHT DECREASED [None]
  - INTERNATIONAL NORMALISED RATIO DECREASED [None]
  - ATRIAL FIBRILLATION [None]
